FAERS Safety Report 7188118-4 (Version None)
Quarter: 2010Q4

REPORT INFORMATION
  Report Type: 
  Country: None (occurrence: None)
  Receive Date: 20101222
  Receipt Date: 20101220
  Transmission Date: 20110411
  Serious: Yes (Hospitalization)
  Sender: FDA-Public Use
  Company Number: SE-PFIZER INC-2010175286

PATIENT
  Age: 79 Year
  Sex: Male

DRUGS (4)
  1. TOVIAZ [Suspect]
     Indication: BLADDER DISORDER
     Dosage: UNK
     Route: 048
     Dates: start: 20101028, end: 20101104
  2. ALFUZOSIN [Suspect]
     Indication: BENIGN PROSTATIC HYPERPLASIA
     Dosage: UNK
     Route: 048
     Dates: start: 20101028, end: 20101104
  3. SIMVASTATIN [Concomitant]
     Dosage: UNK
  4. EFFORTIL [Concomitant]
     Dosage: 5 MG, UNK

REACTIONS (1)
  - ORTHOSTATIC HYPOTENSION [None]
